FAERS Safety Report 5235799-8 (Version None)
Quarter: 2007Q1

REPORT INFORMATION
  Report Type: 
  Country: None (occurrence: None)
  Receive Date: 20061208
  Receipt Date: 20060621
  Transmission Date: 20070707
  Serious: Yes (Other)
  Sender: FDA-Public Use
  Company Number: 2006UW13179

PATIENT
  Age: 73 Year
  Sex: Female
  Weight: 59.874 kg

DRUGS (11)
  1. CRESTOR [Suspect]
     Indication: BLOOD CHOLESTEROL INCREASED
     Dosage: 5 MG QD PO
     Route: 048
     Dates: start: 20060616
  2. TRICOR [Concomitant]
  3. LYRICA [Concomitant]
  4. COREG [Concomitant]
  5. FUROSEMIDE [Concomitant]
  6. GLYBURIDE [Concomitant]
  7. FOLIC ACID [Concomitant]
  8. ASPIRIN [Concomitant]
  9. PREVACID [Concomitant]
  10. EFFEXOR [Concomitant]
  11. LITHIUM CARBONATE [Concomitant]

REACTIONS (2)
  - MYALGIA [None]
  - VISION BLURRED [None]
